FAERS Safety Report 24985787 (Version 1)
Quarter: 2025Q1

REPORT INFORMATION
  Report Type: Spontaneous
  Country: US (occurrence: None)
  Receive Date: 20250217
  Receipt Date: 20250217
  Transmission Date: 20250409
  Serious: Yes (Other)
  Sender: FDA-CTU
  Company Number: None

PATIENT
  Age: 56 Year
  Sex: Female
  Weight: 76.5 kg

DRUGS (1)
  1. PREGABALIN [Suspect]
     Active Substance: PREGABALIN

REACTIONS (7)
  - Seizure like phenomena [None]
  - Aphasia [None]
  - Memory impairment [None]
  - Dyskinesia [None]
  - Arthropathy [None]
  - Fall [None]
  - Memory impairment [None]

NARRATIVE: CASE EVENT DATE: 20241130
